FAERS Safety Report 8581439-X (Version None)
Quarter: 2012Q3

REPORT INFORMATION
  Report Type: 
  Country: None (occurrence: None)
  Receive Date: 20120809
  Receipt Date: 20120731
  Transmission Date: 20120928
  Serious: Yes (Hospitalization)
  Sender: FDA-Public Use
  Company Number: US-BRISTOL-MYERS SQUIBB COMPANY-16825531

PATIENT
  Age: 66 Year
  Sex: Male
  Weight: 78 kg

DRUGS (3)
  1. PRAVASTATIN SODIUM [Suspect]
     Indication: ACUTE MYELOID LEUKAEMIA
     Dosage: NO OF COURSES:1
     Route: 048
     Dates: start: 20111007, end: 20111014
  2. IDARUBICIN HCL [Suspect]
     Indication: ACUTE MYELOID LEUKAEMIA
     Dosage: NO OF COURSES:1
     Dates: start: 20111010, end: 20111012
  3. CYTARABINE [Suspect]
     Indication: ACUTE MYELOID LEUKAEMIA
     Dosage: NO OF COURSES:1
     Route: 042
     Dates: start: 20111010, end: 20111013

REACTIONS (1)
  - BACTERAEMIA [None]
